FAERS Safety Report 10663760 (Version 1)
Quarter: 2014Q4

REPORT INFORMATION
  Report Type: Report from Study
  Country: ZA (occurrence: None)
  Receive Date: 20141217
  Receipt Date: 20141217
  Transmission Date: 20150529
  Serious: Yes (Death, Other)
  Sender: FDA-Public Use
  Company Number: ZA2014GSK018165

PATIENT
  Age: 36 Year
  Weight: 45.4 kg

DRUGS (1)
  1. ABACAVIR SULPHATE+DOLUTEGRAVIR+LAMIVUDINE(ABACAVIR SULPHATE, DOLUTEGRAVIR, LAMIVUDINE) TABLET?? [Suspect]
     Active Substance: ABACAVIR SULFATE\DOLUTEGRAVIR SODIUM\LAMIVUDINE
     Indication: HIV INFECTION
     Route: 048
     Dates: start: 20140609, end: 201408

REACTIONS (1)
  - General physical health deterioration [None]

NARRATIVE: CASE EVENT DATE: 20140829
